FAERS Safety Report 4366758-5 (Version None)
Quarter: 2004Q2

REPORT INFORMATION
  Report Type: 
  Country: None (occurrence: None)
  Receive Date: 20040526
  Receipt Date: 20040526
  Transmission Date: 20050107
  Serious: Yes (Death)
  Sender: FDA-Public Use
  Company Number: None

PATIENT
  Age: 56 Year
  Sex: Female
  Weight: 56.3 kg

DRUGS (7)
  1. GEMCITABINE [Suspect]
     Indication: PANCREATIC CARCINOMA
     Dosage: 1800 MG WEEKLY X 7 IV
     Route: 042
     Dates: start: 20040324, end: 20040505
  2. DEXAMETHASONE [Concomitant]
  3. ONDANSETRON [Concomitant]
  4. LASIX [Concomitant]
  5. PREVACID [Concomitant]
  6. HYDROCODONE [Concomitant]
  7. SPIRONOLACETONE [Concomitant]

REACTIONS (7)
  - ABDOMINAL DISCOMFORT [None]
  - ABDOMINAL DISTENSION [None]
  - ASCITES [None]
  - JAUNDICE [None]
  - MALIGNANT NEOPLASM PROGRESSION [None]
  - OCULAR ICTERUS [None]
  - OEDEMA PERIPHERAL [None]
